FAERS Safety Report 4381784-8 (Version None)
Quarter: 2004Q2

REPORT INFORMATION
  Report Type: 
  Country: None (occurrence: None)
  Receive Date: 20040615
  Receipt Date: 20040602
  Transmission Date: 20050107
  Serious: Yes (Hospitalization, Other)
  Sender: FDA-Public Use
  Company Number: JP-JNJFOC-20040104961

PATIENT
  Age: 70 Year

DRUGS (4)
  1. FENTANYL [Suspect]
     Indication: CANCER PAIN
     Dosage: 7.5 MG, 1 IN 72 HOUR, TRANSDERMAL; SEE IMAGE
     Route: 062
     Dates: start: 20031201, end: 20040121
  2. FENTANYL [Suspect]
     Indication: CANCER PAIN
     Dosage: 7.5 MG, 1 IN 72 HOUR, TRANSDERMAL; SEE IMAGE
     Route: 062
     Dates: start: 20040121
  3. ROXATIDINE ACETATE HCL [Concomitant]
  4. LACTOBACILLUS CASEI (LACTOBACILLUS ACIDOPHILUS) [Concomitant]

REACTIONS (5)
  - ANOREXIA [None]
  - DRUG EFFECT DECREASED [None]
  - ELECTROCARDIOGRAM P WAVE ABNORMAL [None]
  - ILEUS [None]
  - SICK SINUS SYNDROME [None]
